FAERS Safety Report 11309260 (Version 1)
Quarter: 2015Q3

REPORT INFORMATION
  Report Type: Spontaneous
  Country: FR (occurrence: FR)
  Receive Date: 20150724
  Receipt Date: 20150724
  Transmission Date: 20151125
  Serious: Yes (Other)
  Sender: FDA-Public Use
  Company Number: PHHY2015FR086456

PATIENT
  Age: 66 Year
  Sex: Male

DRUGS (2)
  1. AMOXICILLIN. [Suspect]
     Active Substance: AMOXICILLIN
     Indication: ENCEPHALITIS
     Dosage: 3 G, UNK
     Route: 065
  2. METHYLPREDNISOLONE. [Concomitant]
     Active Substance: METHYLPREDNISOLONE
     Indication: ENCEPHALOMYELITIS
     Dosage: 1 G, QD
     Route: 065

REACTIONS (4)
  - Haematuria [Recovering/Resolving]
  - Proteinuria [Recovering/Resolving]
  - Crystal nephropathy [Recovering/Resolving]
  - Oliguria [Recovering/Resolving]
